FAERS Safety Report 25055190 (Version 1)
Quarter: 2025Q1

REPORT INFORMATION
  Report Type: Spontaneous
  Country: BR (occurrence: BR)
  Receive Date: 20250308
  Receipt Date: 20250308
  Transmission Date: 20250409
  Serious: Yes (Hospitalization, Other)
  Sender: ANI
  Company Number: 2025-BR-000002

PATIENT
  Sex: Male

DRUGS (11)
  1. FLUVOXAMINE [Suspect]
     Active Substance: FLUVOXAMINE
     Indication: Obsessive-compulsive disorder
     Route: 048
     Dates: start: 2017
  2. CLOMIPRAMINE [Concomitant]
     Active Substance: CLOMIPRAMINE
     Indication: Obsessive-compulsive disorder
     Dates: start: 2014
  3. PRAZOLAN [Concomitant]
     Indication: Social anxiety disorder
     Dates: start: 2014
  4. CLONAZEPAM [Concomitant]
     Active Substance: CLONAZEPAM
     Indication: Product used for unknown indication
  5. ARPEJO [Concomitant]
  6. PRAZOLAN [Concomitant]
     Indication: Anxiety
     Dates: start: 2014
  7. FLUVOXAMINE [Suspect]
     Active Substance: FLUVOXAMINE
     Indication: Obsessive-compulsive disorder
     Route: 048
     Dates: start: 2024
  8. FLUVOXAMINE [Suspect]
     Active Substance: FLUVOXAMINE
     Indication: Obsessive-compulsive disorder
     Route: 048
  9. FLUVOXAMINE [Suspect]
     Active Substance: FLUVOXAMINE
     Indication: Obsessive-compulsive disorder
     Route: 048
  10. CLOMIPRAMINE [Concomitant]
     Active Substance: CLOMIPRAMINE
     Indication: Obsessive-compulsive disorder
  11. CLOMIPRAMINE [Concomitant]
     Active Substance: CLOMIPRAMINE
     Indication: Obsessive-compulsive disorder

REACTIONS (14)
  - Obsessive-compulsive disorder [Not Recovered/Not Resolved]
  - Head discomfort [Not Recovered/Not Resolved]
  - Nausea [Not Recovered/Not Resolved]
  - Vomiting [Not Recovered/Not Resolved]
  - Drug interaction [Not Recovered/Not Resolved]
  - Intentional underdose [Unknown]
  - Constipation [Not Recovered/Not Resolved]
  - Dry mouth [Unknown]
  - Dizziness [Not Recovered/Not Resolved]
  - Treatment noncompliance [Unknown]
  - Suicide attempt [Unknown]
  - Brain hypoxia [Unknown]
  - Emotional distress [Unknown]
  - Suicidal ideation [Not Recovered/Not Resolved]
